FAERS Safety Report 6528563-0 (Version None)
Quarter: 2009Q4

REPORT INFORMATION
  Report Type: 
  Country: None (occurrence: None)
  Receive Date: 20091231
  Receipt Date: 20091217
  Transmission Date: 20100525
  Serious: Yes (Life-Threatening, Hospitalization)
  Sender: FDA-Public Use
  Company Number: 008371

PATIENT
  Age: 78 Year
  Sex: Male

DRUGS (9)
  1. PLETAL [Suspect]
     Indication: ARTERIOSCLEROSIS OBLITERANS
     Dosage: ORAL; 45 DF, SINGLE, ORAL
     Route: 048
     Dates: start: 20090924, end: 20090924
  2. PIRESPA (PIRFENDONE) TABLET [Suspect]
     Indication: IDIOPATHIC PULMONARY FIBROSIS
     Dosage: 200 MG, TID, ORAL; 400, TID, ORAL; 600 MG, TID, ORAL; 57 DF, SINGLE, ORAL
     Route: 048
     Dates: start: 20090924, end: 20090924
  3. PIRESPA (PIRFENDONE) TABLET [Suspect]
     Indication: IDIOPATHIC PULMONARY FIBROSIS
     Dosage: 200 MG, TID, ORAL; 400, TID, ORAL; 600 MG, TID, ORAL; 57 DF, SINGLE, ORAL
     Route: 048
     Dates: start: 20090820
  4. PIRESPA (PIRFENDONE) TABLET [Suspect]
     Indication: IDIOPATHIC PULMONARY FIBROSIS
     Dosage: 200 MG, TID, ORAL; 400, TID, ORAL; 600 MG, TID, ORAL; 57 DF, SINGLE, ORAL
     Route: 048
     Dates: start: 20090903
  5. PIRESPA (PIRFENDONE) TABLET [Suspect]
     Indication: IDIOPATHIC PULMONARY FIBROSIS
     Dosage: 200 MG, TID, ORAL; 400, TID, ORAL; 600 MG, TID, ORAL; 57 DF, SINGLE, ORAL
     Route: 048
     Dates: start: 20090917
  6. URIEF (SILODOSIN) [Concomitant]
  7. TAMSULOSIN HCL [Concomitant]
  8. SODIUM AZULENE SULFONATE/L-GLUTAMINE [Concomitant]
  9. LANSOPRAZOLE [Concomitant]

REACTIONS (4)
  - ALTERED STATE OF CONSCIOUSNESS [None]
  - GASTROINTESTINAL DISORDER [None]
  - MULTIPLE DRUG OVERDOSE INTENTIONAL [None]
  - PSYCHIATRIC SYMPTOM [None]
